FAERS Safety Report 25619965 (Version 1)
Quarter: 2025Q3

REPORT INFORMATION
  Report Type: Spontaneous
  Country: US (occurrence: US)
  Receive Date: 20250730
  Receipt Date: 20250730
  Transmission Date: 20251020
  Serious: No
  Sender: ROCHE
  Company Number: US-ROCHE-10000343642

PATIENT
  Age: 75 Year
  Sex: Male

DRUGS (2)
  1. RITUXAN [Suspect]
     Active Substance: RITUXIMAB
     Indication: Lymphoma
     Route: 065
  2. BRUKINSA [Suspect]
     Active Substance: ZANUBRUTINIB
     Indication: Lymphoma
     Dosage: 2 TABLETS?INTERVAL: 12 HOURS?DRUG CUMULATIVE DOSE: 320 MG?TOTAL DRUG DURATION: 3 MONTHS
     Route: 048
     Dates: start: 20250401

REACTIONS (1)
  - Infusion related reaction [Unknown]
